FAERS Safety Report 14473484 (Version 1)
Quarter: 2018Q1

REPORT INFORMATION
  Report Type: Spontaneous
  Country: US (occurrence: US)
  Receive Date: 20180131
  Receipt Date: 20180131
  Transmission Date: 20180509
  Serious: Yes (Other)
  Sender: FDA-Public Use
  Company Number: None

PATIENT
  Age: 68 Year
  Sex: Male

DRUGS (1)
  1. ZYTIGA [Suspect]
     Active Substance: ABIRATERONE ACETATE
     Indication: LEUKAEMIA
     Route: 048
     Dates: start: 20150428

REACTIONS (3)
  - Drug ineffective [None]
  - Therapy cessation [None]
  - Prostatic specific antigen increased [None]
